FAERS Safety Report 6841621-6 (Version None)
Quarter: 2010Q3

REPORT INFORMATION
  Report Type: 
  Country: None (occurrence: None)
  Receive Date: 20100714
  Receipt Date: 20070710
  Transmission Date: 20110219
  Serious: No
  Sender: FDA-Public Use
  Company Number: US-PFIZER INC-2007058026

PATIENT
  Age: 51 Year
  Sex: Female
  Weight: 112 kg

DRUGS (10)
  1. CHANTIX [Suspect]
     Indication: SMOKING CESSATION THERAPY
     Dates: start: 20061001
  2. LEXAPRO [Interacting]
     Indication: DEPRESSION
  3. PROVIGIL [Interacting]
  4. PERCOCET [Concomitant]
     Indication: BACK INJURY
  5. METHADONE HCL [Concomitant]
     Indication: BACK INJURY
  6. VERAPAMIL [Concomitant]
  7. HYDROCHLOROTHIAZIDE [Concomitant]
  8. ZOCOR [Concomitant]
  9. TRANXENE [Concomitant]
  10. GLUCOPHAGE [Concomitant]

REACTIONS (3)
  - DRUG INEFFECTIVE [None]
  - DRUG INTERACTION [None]
  - HEADACHE [None]
